FAERS Safety Report 13914495 (Version 1)
Quarter: 2017Q3

REPORT INFORMATION
  Report Type: Spontaneous
  Country: US (occurrence: US)
  Receive Date: 20170828
  Receipt Date: 20170828
  Transmission Date: 20171127
  Serious: No
  Sender: FDA-Public Use
  Company Number: US-ROCHE-1130594

PATIENT
  Sex: Male

DRUGS (1)
  1. NUTROPIN [Suspect]
     Active Substance: SOMATROPIN
     Indication: GROWTH HORMONE DEFICIENCY
     Dosage: 7 INJECTIONS PER WEEK, 0.2ML DAILY, DILUTE: 1.4ML
     Route: 058

REACTIONS (2)
  - Breast disorder [Unknown]
  - Drug ineffective [Unknown]
